FAERS Safety Report 12091132 (Version 1)
Quarter: 2016Q1

REPORT INFORMATION
  Report Type: Spontaneous
  Country: US (occurrence: US)
  Receive Date: 20160218
  Receipt Date: 20160218
  Transmission Date: 20160526
  Serious: Yes (Other)
  Sender: FDA-Public Use
  Company Number: US-GLAXOSMITHKLINE-US2016GSK023617

PATIENT
  Age: 30 Year
  Sex: Female

DRUGS (2)
  1. LAMOTRIGINE. [Suspect]
     Active Substance: LAMOTRIGINE
     Indication: SEIZURE
  2. DIVALPROEX [Interacting]
     Active Substance: DIVALPROEX SODIUM
     Indication: SEIZURE

REACTIONS (15)
  - Face oedema [Unknown]
  - Leukocytosis [Unknown]
  - Jaundice [Unknown]
  - Anticonvulsant drug level increased [Unknown]
  - Swelling [Unknown]
  - Lymphadenopathy [Unknown]
  - Transaminases increased [Not Recovered/Not Resolved]
  - Rash pruritic [Recovering/Resolving]
  - Nausea [Unknown]
  - Rash morbilliform [Recovering/Resolving]
  - Decreased appetite [Unknown]
  - Eosinophilia [Unknown]
  - Drug interaction [Unknown]
  - Drug reaction with eosinophilia and systemic symptoms [Recovering/Resolving]
  - Pyrexia [Unknown]
